FAERS Safety Report 9510122 (Version 1)
Quarter: 2013Q3

REPORT INFORMATION
  Report Type: Spontaneous
  Country: US (occurrence: US)
  Receive Date: 20130909
  Receipt Date: 20130909
  Transmission Date: 20140515
  Serious: No
  Sender: FDA-Public Use
  Company Number: US-BRISTOL-MYERS SQUIBB COMPANY-18758888

PATIENT
  Age: 59 Year
  Sex: Female

DRUGS (5)
  1. ABILIFY [Suspect]
     Dosage: DOSE REDUCED:2MG.?TAKES AT DINNER TIME AT NIGHT.
     Dates: start: 2003
  2. LITHIUM [Concomitant]
  3. TEMAZEPAM [Concomitant]
  4. LIPITOR [Concomitant]
  5. OMEPRAZOLE [Concomitant]

REACTIONS (1)
  - Muscle twitching [Unknown]
